FAERS Safety Report 5446346-X (Version None)
Quarter: 2007Q3

REPORT INFORMATION
  Report Type: 
  Country: None (occurrence: None)
  Receive Date: 20070907
  Receipt Date: 20070904
  Transmission Date: 20080115
  Serious: Yes (Other)
  Sender: FDA-Public Use
  Company Number: A0678439A

PATIENT
  Sex: Male

DRUGS (2)
  1. REQUIP [Suspect]
     Indication: PARKINSON'S DISEASE
     Dosage: .25MG THREE TIMES PER DAY
     Route: 048
     Dates: start: 20070827
  2. NO CONCURRENT MEDICATION [Concomitant]

REACTIONS (6)
  - AGITATION [None]
  - ANXIETY [None]
  - HALLUCINATION [None]
  - NIGHTMARE [None]
  - NYSTAGMUS [None]
  - TREMOR [None]
